FAERS Safety Report 8089784-1 (Version None)
Quarter: 2012Q1

REPORT INFORMATION
  Report Type: 
  Country: None (occurrence: None)
  Receive Date: 20120128
  Receipt Date: 20110713
  Transmission Date: 20120608
  Serious: No
  Sender: FDA-Public Use
  Company Number: US-ABBOTT-11P-163-0838671-00

PATIENT
  Age: 31 Year
  Sex: Female

DRUGS (4)
  1. HUMIRA [Suspect]
     Indication: PSORIASIS
     Dates: start: 20110501
  2. METHOTREXATE [Concomitant]
     Indication: ARTHRITIS
     Route: 048
  3. ZYRTEC [Concomitant]
     Indication: HYPERSENSITIVITY
     Route: 048
  4. LOESTRIN 1.5/30 [Concomitant]
     Indication: CONTRACEPTION
     Route: 048

REACTIONS (4)
  - HEADACHE [None]
  - URINARY TRACT INFECTION [None]
  - NAUSEA [None]
  - INJECTION SITE PAIN [None]
